FAERS Safety Report 18479228 (Version 5)
Quarter: 2023Q1

REPORT INFORMATION
  Report Type: Report from Study
  Country: FR (occurrence: FR)
  Receive Date: 20201109
  Receipt Date: 20230220
  Transmission Date: 20230418
  Serious: Yes (Life-Threatening, Hospitalization)
  Sender: FDA-Public Use
  Company Number: None

PATIENT
  Age: 56 Year
  Sex: Female
  Weight: 63 kg

DRUGS (9)
  1. LETROZOLE [Suspect]
     Active Substance: LETROZOLE
     Indication: Breast cancer
     Dosage: 2.5 MG, UNKNOWN
     Route: 048
     Dates: start: 20190910, end: 20201201
  2. RIBOCICLIB [Suspect]
     Active Substance: RIBOCICLIB
     Indication: Breast cancer
     Dosage: 400 MG, 2 TABLETS
     Route: 048
     Dates: start: 20190910, end: 20190930
  3. RIBOCICLIB [Suspect]
     Active Substance: RIBOCICLIB
     Dosage: 200 MG, 1 TABLET
     Route: 048
     Dates: start: 20191025, end: 20191028
  4. OXAZEPAM [Concomitant]
     Active Substance: OXAZEPAM
     Indication: Anxiety
     Dosage: 10 MG, QD
     Route: 065
     Dates: start: 202003
  5. ESCITALOPRAM OXALATE [Concomitant]
     Active Substance: ESCITALOPRAM OXALATE
     Indication: Anxiety
     Dosage: 15 MG, QD
     Route: 065
     Dates: start: 202003
  6. DOLIPRANE [Concomitant]
     Active Substance: ACETAMINOPHEN
     Indication: Back pain
     Dosage: 1000 MG, QD
     Route: 065
     Dates: start: 20190925
  7. ESCITALOPRAM OXALATE [Concomitant]
     Active Substance: ESCITALOPRAM OXALATE
     Indication: Anxiety
     Dosage: 20 MG, QD
     Route: 065
     Dates: start: 20200102
  8. DESLORATADINE [Concomitant]
     Active Substance: DESLORATADINE
     Indication: Hypersensitivity
     Dosage: 5 MG, QD
     Route: 065
     Dates: start: 20200101
  9. MOMETASONE FUROATE [Concomitant]
     Active Substance: MOMETASONE FUROATE
     Indication: Hypersensitivity
     Dosage: 50 MG, QD
     Route: 065
     Dates: start: 20200101

REACTIONS (3)
  - Delirium tremens [Recovered/Resolved]
  - Paraplegia [Recovered/Resolved with Sequelae]
  - Spinal cord compression [Recovered/Resolved with Sequelae]

NARRATIVE: CASE EVENT DATE: 20201020
